FAERS Safety Report 6348837-6 (Version None)
Quarter: 2009Q3

REPORT INFORMATION
  Report Type: 
  Country: None (occurrence: None)
  Receive Date: 20090911
  Receipt Date: 20090828
  Transmission Date: 20100115
  Serious: Yes (Hospitalization)
  Sender: FDA-Public Use
  Company Number: US-ROCHE-653525

PATIENT
  Sex: Female
  Weight: 21.3 kg

DRUGS (19)
  1. DACLIZUMAB [Suspect]
     Indication: RENAL TRANSPLANT
     Dosage: FREQUENCY REPORTED AS X1. DRUG NAME REPORTED AS ZENAPAX (DACLIZUMAB).
     Route: 042
     Dates: start: 20050906, end: 20050906
  2. DACLIZUMAB [Suspect]
     Dosage: FREQUENCY REPORTED AS X1.
     Route: 042
     Dates: start: 20050921, end: 20050921
  3. DACLIZUMAB [Suspect]
     Dosage: FREQUENCY REPORTED AS X1.
     Route: 042
     Dates: start: 20051010, end: 20051010
  4. DACLIZUMAB [Suspect]
     Dosage: FREQUENCY REPORTED AS X1.
     Route: 042
     Dates: start: 20051117, end: 20051117
  5. DACLIZUMAB [Suspect]
     Dosage: FREQUENCY REPORTED AS X1.
     Route: 042
     Dates: start: 20051201, end: 20051201
  6. DULCOLAX [Concomitant]
     Dates: start: 20051019
  7. NIFEDIPINE [Concomitant]
     Dosage: DRUG NAME REPORTED AS NIFIDPINE.
     Dates: start: 20051020
  8. TYLENOL W/ CODEINE [Concomitant]
     Dates: start: 20051020
  9. AMPICILLIN [Concomitant]
     Dates: start: 20051022
  10. VALCYTE [Concomitant]
     Dates: start: 20050912
  11. NYSTATIN [Concomitant]
     Dosage: DRUG NAME REPORTED AS NYSTATIN SS.
     Dates: start: 20050914
  12. MIRALAX [Concomitant]
     Dates: start: 20050920
  13. PREVACID [Concomitant]
     Dates: start: 20051019
  14. NORVASC [Concomitant]
     Dates: start: 20050907
  15. SEPTRA DS [Concomitant]
     Dates: start: 20050916
  16. MAG-OX [Concomitant]
     Dates: start: 20050919
  17. PREDNISONE TAB [Concomitant]
     Dates: start: 20051021
  18. TACROLIMUS [Concomitant]
     Dates: start: 20050907, end: 20050909
  19. CELLCEPT [Concomitant]

REACTIONS (1)
  - GLOMERULONEPHRITIS MEMBRANOPROLIFERATIVE [None]
